FAERS Safety Report 7449470-5 (Version None)
Quarter: 2011Q2

REPORT INFORMATION
  Report Type: 
  Country: None (occurrence: None)
  Receive Date: 20110502
  Receipt Date: 20110419
  Transmission Date: 20111010
  Serious: Yes (Disabling)
  Sender: FDA-Public Use
  Company Number: BR-BAYER-2011-034825

PATIENT
  Age: 79 Year
  Sex: Male

DRUGS (5)
  1. ASPIRIN [Suspect]
     Indication: POOR PERIPHERAL CIRCULATION
  2. ENALAPRIL [Concomitant]
  3. SIMVASTATIN [Concomitant]
  4. HEPARIN [Suspect]
     Indication: THROMBOSIS PROPHYLAXIS
  5. CLOPIDOGREL [Suspect]
     Indication: POOR PERIPHERAL CIRCULATION

REACTIONS (3)
  - PARAPLEGIA [None]
  - EXTRADURAL HAEMATOMA [None]
  - ARTERIOVENOUS FISTULA [None]
